FAERS Safety Report 20018948 (Version 2)
Quarter: 2021Q4

REPORT INFORMATION
  Report Type: Other
  Country: AU (occurrence: None)
  Receive Date: 20211101
  Receipt Date: 20211109
  Transmission Date: 20220303
  Serious: Yes (Other)
  Sender: FDA-Public Use
  Company Number: AU-ROCHE-2947207

PATIENT

DRUGS (5)
  1. RITUXIMAB [Suspect]
     Active Substance: RITUXIMAB
     Indication: Diffuse large B-cell lymphoma
     Dosage: DAY 1 OF EACH CYCLE FOR A MAXIMUM OF 8 CYCLES
     Route: 041
  2. AVELUMAB [Suspect]
     Active Substance: AVELUMAB
     Indication: Diffuse large B-cell lymphoma
     Route: 042
  3. UTOMILUMAB [Suspect]
     Active Substance: UTOMILUMAB
     Indication: Diffuse large B-cell lymphoma
     Dosage: ON DAY 2 OF EACH CYCLE IN CYCLES 1 AND 2
     Route: 042
  4. BENDAMUSTINE [Suspect]
     Active Substance: BENDAMUSTINE
     Indication: Diffuse large B-cell lymphoma
     Dosage: ON DAYS 2 AND 3 OF CYCLES 1 AND 2
     Route: 042
  5. ACETAMINOPHEN [Concomitant]
     Active Substance: ACETAMINOPHEN
     Dosage: 30-60 MIN

REACTIONS (9)
  - Herpes zoster [Recovered/Resolved]
  - Ophthalmic herpes zoster [Recovered/Resolved]
  - Neutropenia [Unknown]
  - Lymphocyte count decreased [Unknown]
  - Thrombocytopenia [Unknown]
  - Febrile neutropenia [Unknown]
  - Infection [Unknown]
  - Blood disorder [Unknown]
  - Lymphatic disorder [Unknown]
